FAERS Safety Report 21257775 (Version 1)
Quarter: 2022Q3

REPORT INFORMATION
  Report Type: Other
  Country: CA (occurrence: CA)
  Receive Date: 20220826
  Receipt Date: 20220826
  Transmission Date: 20221027
  Serious: Yes (Other)
  Sender: FDA-Public Use
  Company Number: CA-CELLTRION INC.-2022CA013937

PATIENT

DRUGS (18)
  1. RITUXIMAB [Suspect]
     Active Substance: RITUXIMAB
     Indication: Granulomatosis with polyangiitis
     Dosage: 100 MILLIGRAM
     Route: 041
  2. ACETAMINOPHEN [Concomitant]
     Active Substance: ACETAMINOPHEN
     Route: 048
  3. ACETAMINOPHEN\OXYCODONE HYDROCHLORIDE [Concomitant]
     Active Substance: ACETAMINOPHEN\OXYCODONE HYDROCHLORIDE
  4. AMITRIPTYLINE [Concomitant]
     Active Substance: AMITRIPTYLINE
  5. BENADRYL [Concomitant]
     Active Substance: DIPHENHYDRAMINE HYDROCHLORIDE
     Route: 048
  6. DULAGLUTIDE [Concomitant]
     Active Substance: DULAGLUTIDE
     Dosage: 1.5 MILLIGRAM
     Route: 065
  7. HYDROMORPHONE [Concomitant]
     Active Substance: HYDROMORPHONE
  8. IRON [Concomitant]
     Active Substance: IRON
  9. LANSOPRAZOLE [Concomitant]
     Active Substance: LANSOPRAZOLE
     Dosage: 2 EVERY 1 DAYS
     Route: 065
  10. LEFLUNOMIDE [Concomitant]
     Active Substance: LEFLUNOMIDE
     Dosage: 30 MILLIGRAM, 1 EVERY 1 DAY
     Route: 065
  11. METFORMIN [Concomitant]
     Active Substance: METFORMIN HYDROCHLORIDE
     Route: 065
  12. METHYLPREDNISOLONE SODIUM SUCCINATE [Concomitant]
     Active Substance: METHYLPREDNISOLONE SODIUM SUCCINATE
     Route: 042
  13. METOPROLOL [Concomitant]
     Active Substance: METOPROLOL
  14. PERINDOPRIL [Concomitant]
     Active Substance: PERINDOPRIL
     Dosage: 40 MILLIGRAM, 1 EVERY 1 DAYS
     Route: 065
  15. POTASSIUM [Concomitant]
     Active Substance: POTASSIUM
  16. PREDNISONE [Concomitant]
     Active Substance: PREDNISONE
  17. ROSUVASTATIN [Concomitant]
     Active Substance: ROSUVASTATIN
     Route: 058
  18. SERTRALINE [Concomitant]
     Active Substance: SERTRALINE HYDROCHLORIDE

REACTIONS (20)
  - Bronchopleural fistula [Unknown]
  - Deafness [Unknown]
  - Dry eye [Unknown]
  - Eye pruritus [Unknown]
  - Fistula [Unknown]
  - Ocular fistula [Unknown]
  - Ocular hyperaemia [Unknown]
  - Productive cough [Unknown]
  - Tympanic membrane perforation [Unknown]
  - Weight increased [Unknown]
  - Abscess limb [Unknown]
  - Cellulitis [Unknown]
  - Cough [Unknown]
  - Empyema [Unknown]
  - Epistaxis [Unknown]
  - Osteomyelitis [Unknown]
  - Pneumonia [Unknown]
  - Rhinorrhoea [Unknown]
  - Sinusitis [Unknown]
  - Urinary tract infection [Unknown]
